FAERS Safety Report 5770034-3 (Version None)
Quarter: 2008Q2

REPORT INFORMATION
  Report Type: 
  Country: None (occurrence: None)
  Receive Date: 20080613
  Receipt Date: 20080417
  Transmission Date: 20081010
  Serious: No
  Sender: FDA-Public Use
  Company Number: US-ABBOTT-08P-163-0447652-00

PATIENT
  Sex: Female
  Weight: 77.18 kg

DRUGS (5)
  1. HUMIRA [Suspect]
     Indication: ARTHRITIS
     Route: 058
     Dates: start: 20040101
  2. METHOTREXATE [Concomitant]
     Indication: ARTHRITIS
     Route: 048
     Dates: start: 20080101
  3. FOLIC ACID [Concomitant]
     Indication: DRUG USE FOR UNKNOWN INDICATION
     Route: 048
     Dates: start: 20080101
  4. CYCLOBENZAPRINE HCL [Concomitant]
     Indication: ARTHRALGIA
     Route: 048
  5. PROPACET 100 [Concomitant]
     Indication: PAIN
     Route: 048

REACTIONS (3)
  - PHARYNGITIS STREPTOCOCCAL [None]
  - STOMATITIS [None]
  - URINARY TRACT INFECTION [None]
